FAERS Safety Report 6139250-5 (Version None)
Quarter: 2009Q2

REPORT INFORMATION
  Report Type: 
  Country: None (occurrence: None)
  Receive Date: 20090401
  Receipt Date: 20090323
  Transmission Date: 20091009
  Serious: Yes (Hospitalization)
  Sender: FDA-Public Use
  Company Number: US-BIOGENIDEC-2009BI009217

PATIENT
  Age: 57 Year
  Sex: Female

DRUGS (1)
  1. AVONEX [Suspect]
     Indication: MULTIPLE SCLEROSIS
     Route: 030
     Dates: start: 20020412

REACTIONS (5)
  - COGNITIVE DISORDER [None]
  - DYSPHAGIA [None]
  - LETHARGY [None]
  - SPEECH DISORDER [None]
  - URINARY TRACT INFECTION [None]
